FAERS Safety Report 5276782-6 (Version None)
Quarter: 2007Q1

REPORT INFORMATION
  Report Type: 
  Country: None (occurrence: None)
  Receive Date: 20070327
  Receipt Date: 20070315
  Transmission Date: 20070707
  Serious: Yes (Other)
  Sender: FDA-Public Use
  Company Number: US-BAYER-200616150BWH

PATIENT
  Age: 53 Year
  Sex: Female

DRUGS (5)
  1. SORAFENIB [Suspect]
     Indication: PANCREATIC ISLETS HYPERPLASIA
     Dosage: TOTAL DAILY DOSE: 800 MG  UNIT DOSE: 200 MG
     Route: 048
     Dates: start: 20060503, end: 20060601
  2. SORAFENIB [Suspect]
     Dosage: TOTAL DAILY DOSE: 400 MG  UNIT DOSE: 200 MG
     Route: 048
     Dates: start: 20060601
  3. IRESSA [Concomitant]
     Dates: start: 20051001, end: 20060201
  4. PREMARIN [Concomitant]
     Indication: OESTROGEN REPLACEMENT THERAPY
  5. IMODIUM [Concomitant]

REACTIONS (8)
  - ABDOMINAL PAIN [None]
  - ALOPECIA [None]
  - HYPERTHYROIDISM [None]
  - HYPOTHYROIDISM [None]
  - PALPITATIONS [None]
  - PHARYNGOLARYNGEAL PAIN [None]
  - TEMPERATURE INTOLERANCE [None]
  - THYROIDITIS [None]
